FAERS Safety Report 5849212-0 (Version None)
Quarter: 2008Q3

REPORT INFORMATION
  Report Type: 
  Country: None (occurrence: None)
  Receive Date: 20080819
  Receipt Date: 20080730
  Transmission Date: 20090109
  Serious: Yes (Other)
  Sender: FDA-Public Use
  Company Number: DE-BAYER-200818980GPV

PATIENT
  Age: 68 Year
  Sex: Male
  Weight: 85 kg

DRUGS (3)
  1. LEVITRA [Suspect]
     Indication: DRUG USE FOR UNKNOWN INDICATION
     Dosage: AS USED: 10 MG  UNIT DOSE: 20 MG
     Route: 048
     Dates: start: 20080301
  2. LEVITRA [Suspect]
     Dosage: TOTAL DAILY DOSE: 20 MG  UNIT DOSE: 20 MG
     Route: 048
     Dates: start: 20080301
  3. LEVITRA [Suspect]
     Route: 065
     Dates: start: 20070901

REACTIONS (2)
  - DRUG USE FOR UNKNOWN INDICATION [None]
  - INTRAOCULAR PRESSURE TEST ABNORMAL [None]
